FAERS Safety Report 24240725 (Version 1)
Quarter: 2024Q3

REPORT INFORMATION
  Report Type: Spontaneous
  Country: FR (occurrence: FR)
  Receive Date: 20240823
  Receipt Date: 20240823
  Transmission Date: 20241017
  Serious: Yes (Other)
  Sender: ABBVIE
  Company Number: None

PATIENT
  Age: 64 Year
  Sex: Male

DRUGS (2)
  1. ADALIMUMAB [Suspect]
     Active Substance: ADALIMUMAB
     Indication: Eosinophilic leukaemia
     Route: 058
     Dates: start: 20020815, end: 20240515
  2. IMATINIB [Suspect]
     Active Substance: IMATINIB
     Indication: Eosinophilic leukaemia
     Dosage: BASE
     Route: 048
     Dates: start: 20191210, end: 20240515

REACTIONS (1)
  - Acute kidney injury [Not Recovered/Not Resolved]

NARRATIVE: CASE EVENT DATE: 20240101
